FAERS Safety Report 23365188 (Version 1)
Quarter: 2024Q1

REPORT INFORMATION
  Report Type: Report from Study
  Country: CA (occurrence: CA)
  Receive Date: 20240104
  Receipt Date: 20240104
  Transmission Date: 20240409
  Serious: Yes (Death, Other)
  Sender: FDA-Public Use
  Company Number: CA-BAYER-2024A001381

PATIENT
  Sex: Female

DRUGS (1)
  1. EYLEA [Suspect]
     Active Substance: AFLIBERCEPT
     Indication: Age-related macular degeneration
     Dosage: TOTAL AFLIBERCEPT INJECTIONS: 3 OS, FREQUENCY OF INJECTIONS: 4-5 WEEKS, SOL FOR INJ, 40 MG/ML
     Dates: start: 20230913, end: 20231129

REACTIONS (1)
  - Death [Fatal]
